APPROVED DRUG PRODUCT: REZULIN
Active Ingredient: TROGLITAZONE
Strength: 200MG
Dosage Form/Route: TABLET;ORAL
Application: N020720 | Product #001
Applicant: PFIZER PHARMACEUTICALS LTD
Approved: Jan 29, 1997 | RLD: No | RS: No | Type: DISCN